FAERS Safety Report 10268182 (Version 1)
Quarter: 2014Q2

REPORT INFORMATION
  Report Type: Spontaneous
  Country: US (occurrence: US)
  Receive Date: 20140630
  Receipt Date: 20140630
  Transmission Date: 20141212
  Serious: Yes (Hospitalization)
  Sender: FDA-Public Use
  Company Number: US-ALKERMES INC.-ALK-2014-003143

PATIENT
  Sex: 0

DRUGS (4)
  1. VIVITROL [Suspect]
     Indication: DRUG DEPENDENCE
     Dosage: 380 MG, QMO
     Route: 030
     Dates: start: 201401
  2. GABAPENTIN [Concomitant]
     Indication: NEURALGIA
     Dosage: 800 MG, TID
  3. IMMUNOSUPPRESSANTS [Concomitant]
     Indication: POLYARTERITIS NODOSA
     Dosage: UNK
  4. ANTIPSYCHOTICS [Concomitant]
     Indication: PRODUCT USED FOR UNKNOWN INDICATION
     Dosage: UNK

REACTIONS (7)
  - Serotonin syndrome [Recovered/Resolved]
  - Convulsion [Recovered/Resolved]
  - Fall [Recovered/Resolved]
  - Limb injury [Not Recovered/Not Resolved]
  - Pain [Recovered/Resolved]
  - Muscle twitching [Recovered/Resolved]
  - Drug abuse [Recovered/Resolved]
